FAERS Safety Report 9314438 (Version 3)
Quarter: 2013Q3

REPORT INFORMATION
  Report Type: Spontaneous
  Country: US (occurrence: US)
  Receive Date: 20130529
  Receipt Date: 20130722
  Transmission Date: 20140515
  Serious: No
  Sender: FDA-Public Use
  Company Number: US-PFIZER INC-2013159566

PATIENT
  Age: 45 Year
  Sex: Female
  Weight: 61.22 kg

DRUGS (8)
  1. DOXEPIN HCL [Suspect]
     Indication: INSOMNIA
     Dosage: 30 MG, DAILY
  2. LYRICA [Suspect]
     Indication: FIBROMYALGIA
     Dosage: 50 MG, 3X/DAY
     Dates: end: 2013
  3. LYRICA [Suspect]
     Dosage: 75 MG, 3X/DAY
  4. LYRICA [Suspect]
     Dosage: 100 MG, 3X/DAY
  5. LYRICA [Suspect]
     Dosage: 200 MG, 3X/DAY
  6. LYRICA [Suspect]
     Dosage: 200 MG, UNK
     Dates: end: 2013
  7. TRAZODONE HYDROCHLORIDE [Suspect]
     Indication: INSOMNIA
     Dosage: 200 MG, DAILY
  8. SYMBICORT [Concomitant]
     Indication: CHRONIC OBSTRUCTIVE PULMONARY DISEASE
     Dosage: UNK

REACTIONS (6)
  - Arthralgia [Unknown]
  - Migraine [Unknown]
  - Insomnia [Unknown]
  - Drug ineffective [Unknown]
  - Fibromyalgia [Unknown]
  - Headache [Unknown]
